FAERS Safety Report 24390952 (Version 1)
Quarter: 2024Q4

REPORT INFORMATION
  Report Type: Other
  Country: DE (occurrence: DE)
  Receive Date: 20241003
  Receipt Date: 20241003
  Transmission Date: 20250114
  Serious: Yes (Hospitalization, Other)
  Sender: MACLEODS
  Company Number: None

PATIENT

DRUGS (12)
  1. ARIPIPRAZOLE [Suspect]
     Active Substance: ARIPIPRAZOLE
     Indication: Antipsychotic therapy
     Dosage: UNK
     Route: 065
  2. ARIPIPRAZOLE [Suspect]
     Active Substance: ARIPIPRAZOLE
     Indication: Impulse-control disorder
  3. ARIPIPRAZOLE [Suspect]
     Active Substance: ARIPIPRAZOLE
     Indication: Intellectual disability
  4. ARIPIPRAZOLE [Suspect]
     Active Substance: ARIPIPRAZOLE
     Indication: Impulse-control disorder
  5. MELPERONE [Suspect]
     Active Substance: MELPERONE
     Indication: Antipsychotic therapy
     Dosage: UNK
     Route: 065
  6. MELPERONE [Suspect]
     Active Substance: MELPERONE
     Indication: Impulse-control disorder
  7. MELPERONE [Suspect]
     Active Substance: MELPERONE
     Indication: Intellectual disability
  8. MELPERONE [Suspect]
     Active Substance: MELPERONE
     Indication: Impulse-control disorder
  9. PIPAMPERONE [Suspect]
     Active Substance: PIPAMPERONE
     Indication: Antipsychotic therapy
     Dosage: UNK
     Route: 065
  10. PIPAMPERONE [Suspect]
     Active Substance: PIPAMPERONE
     Indication: Impulse-control disorder
  11. PIPAMPERONE [Suspect]
     Active Substance: PIPAMPERONE
     Indication: Impulse-control disorder
  12. PIPAMPERONE [Suspect]
     Active Substance: PIPAMPERONE
     Indication: Intellectual disability

REACTIONS (3)
  - Salivary hypersecretion [Unknown]
  - Off label use [Unknown]
  - Drug interaction [Unknown]
